FAERS Safety Report 8474949 (Version 3)
Quarter: 2012Q4

REPORT INFORMATION
  Report Type: Report from Study
  Country: US (occurrence: US)
  Receive Date: 20120323
  Receipt Date: 20120919
  Transmission Date: 20130627
  Serious: Yes (Hospitalization, Other)
  Sender: FDA-Public Use
  Company Number: US-ABBOTT-12P-163-0916442-00

PATIENT
  Age: 51 None
  Sex: Female
  Weight: 61.29 kg

DRUGS (25)
  1. HUMIRA [Suspect]
     Indication: RHEUMATOID ARTHRITIS
     Dates: start: 2005
  2. VICODIN [Suspect]
     Indication: PAIN
     Dates: start: 201005, end: 201005
  3. METHOTREXATE [Suspect]
     Indication: RHEUMATOID ARTHRITIS
     Dosage: 2 AT LUNCH AND 2 AT SUPPER ON THURS
  4. CELEBREX [Concomitant]
     Indication: PAIN
  5. CELEBREX [Concomitant]
     Indication: INFLAMMATION
  6. HYDROXYCHLOROQUINE [Concomitant]
     Indication: RHEUMATOID ARTHRITIS
  7. TRAMADOL [Concomitant]
     Indication: PAIN
  8. RANITIDINE [Concomitant]
     Indication: GASTROOESOPHAGEAL REFLUX DISEASE
  9. FLONASE [Concomitant]
     Indication: HYPERSENSITIVITY
     Dosage: IN EACH NOSTRIL
  10. FOLIC ACID [Concomitant]
     Indication: STOMATITIS
  11. VITAMIN B12 [Concomitant]
     Indication: VITAMIN SUPPLEMENTATION
     Route: 050
  12. ESTROGEN [Concomitant]
     Indication: HORMONE REPLACEMENT THERAPY
  13. ESTROGEN [Concomitant]
  14. LEVOTHYROXINE [Concomitant]
     Indication: HYPOTHYROIDISM
  15. FLORAJEN 3 [Concomitant]
     Indication: VULVOVAGINAL MYCOTIC INFECTION
  16. SUPER B COMPLEX [Concomitant]
     Indication: VITAMIN SUPPLEMENTATION
  17. CHROMIUM PICOLINATE [Concomitant]
     Indication: METABOLIC DISORDER
  18. GLUCOSAMINE SULFATE AND MSM [Concomitant]
     Indication: SUPPLEMENTATION THERAPY
  19. MULTIVITAMIN [Concomitant]
     Indication: VITAMIN SUPPLEMENTATION
  20. IRON [Concomitant]
     Indication: MINERAL SUPPLEMENTATION
  21. CALCIUM + D3 [Concomitant]
  22. VITAMIN D [Concomitant]
     Indication: VITAMIN SUPPLEMENTATION
  23. FENTANYL [Concomitant]
     Indication: CHEST PAIN
  24. GABAPENTIN [Concomitant]
     Indication: NEURALGIA
     Dosage: 600mg lunch, 1200mg supper, 1200mg dinner
  25. TIZANIDINE [Concomitant]
     Indication: MUSCLE RELAXANT THERAPY
     Dosage: 3/day but only takes 2 at bedtime

REACTIONS (11)
  - Necrotising fasciitis streptococcal [Recovered/Resolved]
  - Infection [Recovered/Resolved]
  - Pain [Recovered/Resolved]
  - Injection site pain [Not Recovered/Not Resolved]
  - Drug ineffective [Recovered/Resolved]
  - Injection site pain [Recovered/Resolved]
  - Needle issue [Recovered/Resolved]
  - Raynaud^s phenomenon [Not Recovered/Not Resolved]
  - Intervertebral disc degeneration [Not Recovered/Not Resolved]
  - Osteoarthritis [Not Recovered/Not Resolved]
  - Osteoporosis [Not Recovered/Not Resolved]
